FAERS Safety Report 18006091 (Version 13)
Quarter: 2022Q3

REPORT INFORMATION
  Report Type: Report from Study
  Country: CA (occurrence: CA)
  Receive Date: 20200709
  Receipt Date: 20220712
  Transmission Date: 20221026
  Serious: Yes (Hospitalization, Other)
  Sender: FDA-Public Use
  Company Number: NVSC2020CA159805

PATIENT
  Age: 29 Year
  Sex: Female

DRUGS (5)
  1. ILARIS [Suspect]
     Active Substance: CANAKINUMAB
     Indication: Muckle-Wells syndrome
     Dosage: 150 MG, Q2MO (EVERY 8 WEEKS)
     Route: 058
     Dates: start: 20200414
  2. ILARIS [Suspect]
     Active Substance: CANAKINUMAB
     Dosage: UNK
     Route: 065
     Dates: start: 20200702
  3. ILARIS [Suspect]
     Active Substance: CANAKINUMAB
     Dosage: UNK
     Route: 065
     Dates: start: 20210507
  4. XOLAIR [Concomitant]
     Active Substance: OMALIZUMAB
     Indication: Product used for unknown indication
     Dosage: 300 MG, (FREQUENCY: OTHER)
     Route: 058
     Dates: start: 20190611
  5. ZANTAC [Concomitant]
     Active Substance: RANITIDINE HYDROCHLORIDE
     Indication: Product used for unknown indication
     Dosage: UNK
     Route: 065

REACTIONS (30)
  - Endometriosis [Unknown]
  - Angioedema [Unknown]
  - Uterine infection [Unknown]
  - Cellulitis [Unknown]
  - Feeling hot [Unknown]
  - Erythema [Unknown]
  - Localised oedema [Unknown]
  - Rash [Unknown]
  - Skin plaque [Unknown]
  - Limb injury [Unknown]
  - Wound secretion [Unknown]
  - Dysgeusia [Unknown]
  - Paraesthesia oral [Recovering/Resolving]
  - Pharyngeal paraesthesia [Recovering/Resolving]
  - Tongue disorder [Unknown]
  - Swollen tongue [Not Recovered/Not Resolved]
  - Urticaria [Unknown]
  - Cystitis noninfective [Unknown]
  - Heart rate increased [Unknown]
  - Mouth swelling [Unknown]
  - Pharyngeal swelling [Not Recovered/Not Resolved]
  - Oropharyngeal discomfort [Recovering/Resolving]
  - Oral discomfort [Recovering/Resolving]
  - Tachycardia [Unknown]
  - Middle ear effusion [Unknown]
  - Dyspnoea exertional [Unknown]
  - Sputum discoloured [Unknown]
  - Infection [Unknown]
  - Ear infection [Unknown]
  - Urinary tract infection [Unknown]

NARRATIVE: CASE EVENT DATE: 20210507
